FAERS Safety Report 12384827 (Version 1)
Quarter: 2016Q2

REPORT INFORMATION
  Report Type: Spontaneous
  Country: None (occurrence: None)
  Receive Date: 20160518
  Receipt Date: 20160518
  Transmission Date: 20160815
  Serious: Yes (Other)
  Sender: FDA-Public Use
  Company Number: None

PATIENT
  Age: 38 Year
  Sex: Female
  Weight: 191.87 kg

DRUGS (1)
  1. BELVIQ [Suspect]
     Active Substance: LORCASERIN HYDROCHLORIDE
     Indication: OBESITY
     Route: 048
     Dates: start: 20160507

REACTIONS (9)
  - Unevaluable event [None]
  - Photopsia [None]
  - Migraine [None]
  - Fatigue [None]
  - Visual impairment [None]
  - Nausea [None]
  - Dysarthria [None]
  - Sensory loss [None]
  - Amnesia [None]

NARRATIVE: CASE EVENT DATE: 20160507
